FAERS Safety Report 4803500-5 (Version None)
Quarter: 2005Q4

REPORT INFORMATION
  Report Type: 
  Country: None (occurrence: None)
  Receive Date: 20051014
  Receipt Date: 20051005
  Transmission Date: 20060501
  Serious: Yes (Other)
  Sender: FDA-Public Use
  Company Number: 2005118531

PATIENT
  Age: 60 Year
  Sex: Female

DRUGS (5)
  1. QUINAPRIL HCL [Suspect]
     Indication: HYPERTENSION
     Dosage: 40 MG (40 MG, DAILY), ORAL
     Route: 048
     Dates: start: 20040505
  2. METFORMIN HYDROCHLORIDE [Concomitant]
  3. DOXAZOSIN MESYLATE [Concomitant]
  4. MOBIC [Concomitant]
  5. HYDROCHLOROTHIAZIDE [Concomitant]

REACTIONS (2)
  - BENIGN HEPATIC NEOPLASM [None]
  - HYSTERECTOMY [None]
